FAERS Safety Report 24861545 (Version 2)
Quarter: 2025Q1

REPORT INFORMATION
  Report Type: Report from Study
  Country: CA (occurrence: CA)
  Receive Date: 20250120
  Receipt Date: 20250124
  Transmission Date: 20250409
  Serious: Yes (Other)
  Sender: ABBVIE
  Company Number: CA-ABBVIE-6088328

PATIENT
  Sex: Female

DRUGS (3)
  1. RINVOQ [Suspect]
     Active Substance: UPADACITINIB
     Indication: Ankylosing spondylitis
     Dosage: LAST ADMIN DATE- 2024
     Route: 048
     Dates: start: 20240527
  2. RINVOQ [Suspect]
     Active Substance: UPADACITINIB
     Indication: Ankylosing spondylitis
     Dosage: 1 PILL?LAST ADMIN DATE- 2024
     Route: 048
     Dates: start: 202411
  3. RINVOQ [Suspect]
     Active Substance: UPADACITINIB
     Indication: Ankylosing spondylitis
     Dosage: 2 RINVOQ PILLS DAILY
     Route: 048
     Dates: start: 202412

REACTIONS (14)
  - Internal haemorrhage [Unknown]
  - Scab [Unknown]
  - Drug ineffective [Unknown]
  - Adverse drug reaction [Unknown]
  - Inflammation [Not Recovered/Not Resolved]
  - Arthralgia [Unknown]
  - Myalgia [Unknown]
  - Blood viscosity decreased [Unknown]
  - Pruritus [Unknown]
  - Haemorrhagic diathesis [Unknown]
  - Musculoskeletal stiffness [Unknown]
  - Muscle spasms [Unknown]
  - Skin disorder [Unknown]
  - Respiratory disorder [Unknown]
